FAERS Safety Report 4783410-2 (Version None)
Quarter: 2005Q3

REPORT INFORMATION
  Report Type: 
  Country: None (occurrence: None)
  Receive Date: 20050928
  Receipt Date: 20050928
  Transmission Date: 20060218
  Serious: Yes (Death, Life-Threatening, Hospitalization)
  Sender: FDA-Public Use
  Company Number: None

PATIENT
  Age: 69 Year
  Sex: Female
  Weight: 59 kg

DRUGS (6)
  1. IRINOTECAN HCL [Suspect]
     Indication: SMALL CELL LUNG CANCER STAGE UNSPECIFIED
     Dosage: 200MG/M2 IV Q 21 DAYS
     Route: 042
     Dates: start: 20050919
  2. CARBOPLATIN [Suspect]
     Dosage: AUC 5 IV Q 21 DAYS
     Route: 042
  3. METHADONE HCL [Concomitant]
  4. SINEMET [Concomitant]
  5. LISINOPRIL [Concomitant]
  6. ASPIRIN [Concomitant]

REACTIONS (6)
  - ASTHENIA [None]
  - LETHARGY [None]
  - NAUSEA [None]
  - NEUTROPHIL COUNT DECREASED [None]
  - PLEURAL EFFUSION [None]
  - VOMITING [None]
